FAERS Safety Report 17682557 (Version 4)
Quarter: 2020Q3

REPORT INFORMATION
  Report Type: Report from Study
  Country: BR (occurrence: BR)
  Receive Date: 20200418
  Receipt Date: 20200718
  Transmission Date: 20201102
  Serious: Yes (Life-Threatening, Other)
  Sender: FDA-Public Use
  Company Number: PHHY2019BR065989

PATIENT
  Age: 61 Year
  Sex: Female

DRUGS (11)
  1. XOLAIR [Suspect]
     Active Substance: OMALIZUMAB
     Dosage: 1 DF, QMO
     Route: 058
     Dates: start: 201902, end: 201904
  2. XOLAIR [Suspect]
     Active Substance: OMALIZUMAB
     Dosage: UNK
     Route: 065
     Dates: start: 20200325
  3. XOLAIR [Suspect]
     Active Substance: OMALIZUMAB
     Dosage: UNK
     Route: 065
     Dates: start: 201904
  4. LOSARTAN. [Concomitant]
     Active Substance: LOSARTAN
     Indication: PRODUCT USED FOR UNKNOWN INDICATION
     Dosage: 50 MG, UNK
     Route: 065
  5. XOLAIR [Suspect]
     Active Substance: OMALIZUMAB
     Dosage: UNK
     Route: 065
     Dates: start: 201909
  6. XOLAIR [Suspect]
     Active Substance: OMALIZUMAB
     Indication: CHRONIC SPONTANEOUS URTICARIA
     Dosage: 150 MG (2 AMPOULES) (EVERY 4 WEEKS)
     Route: 065
     Dates: start: 20190131
  7. XOLAIR [Suspect]
     Active Substance: OMALIZUMAB
     Dosage: UNK
     Route: 065
     Dates: start: 20190315
  8. XOLAIR [Suspect]
     Active Substance: OMALIZUMAB
     Dosage: UNK
     Route: 058
     Dates: start: 20200327
  9. PASURTA [Suspect]
     Active Substance: ERENUMAB
     Indication: PRODUCT USED FOR UNKNOWN INDICATION
     Dosage: 1 DF
     Route: 065
  10. XOLAIR [Suspect]
     Active Substance: OMALIZUMAB
     Dosage: 300 MG, UNK
     Route: 065
     Dates: start: 20190215
  11. XOLAIR [Suspect]
     Active Substance: OMALIZUMAB
     Dosage: UNK
     Route: 065
     Dates: start: 202003

REACTIONS (31)
  - Pain [Not Recovered/Not Resolved]
  - Fear [Recovered/Resolved]
  - Therapeutic product effect decreased [Unknown]
  - Oropharyngeal discomfort [Not Recovered/Not Resolved]
  - Urticaria [Recovered/Resolved]
  - Mouth swelling [Recovered/Resolved]
  - Immune system disorder [Unknown]
  - Crying [Not Recovered/Not Resolved]
  - Pruritus [Recovered/Resolved]
  - Somnolence [Unknown]
  - Feeling abnormal [Recovered/Resolved]
  - Swelling [Not Recovered/Not Resolved]
  - Erythema [Unknown]
  - Skin plaque [Not Recovered/Not Resolved]
  - Nervousness [Not Recovered/Not Resolved]
  - Rash [Not Recovered/Not Resolved]
  - Ill-defined disorder [Recovered/Resolved]
  - Drug ineffective [Not Recovered/Not Resolved]
  - Lip swelling [Recovered/Resolved]
  - Swelling face [Recovered/Resolved]
  - Limb discomfort [Not Recovered/Not Resolved]
  - Hypersensitivity [Unknown]
  - Pruritus [Recovered/Resolved]
  - Oral pruritus [Recovered/Resolved]
  - Injury [Unknown]
  - Scratch [Unknown]
  - Injection site pain [Unknown]
  - Insomnia [Not Recovered/Not Resolved]
  - Affective disorder [Not Recovered/Not Resolved]
  - Anxiety [Recovered/Resolved]
  - Intentional product misuse [Unknown]

NARRATIVE: CASE EVENT DATE: 20190520
